FAERS Safety Report 7978894-2 (Version None)
Quarter: 2011Q4

REPORT INFORMATION
  Report Type: 
  Country: None (occurrence: None)
  Receive Date: 20111214
  Receipt Date: 20111206
  Transmission Date: 20120403
  Serious: Yes (Hospitalization, Other)
  Sender: FDA-Public Use
  Company Number: BR-ABBOTT-11P-020-0881717-00

PATIENT
  Sex: Female
  Weight: 69 kg

DRUGS (4)
  1. LOSARTAN POTASSIUM [Concomitant]
     Indication: HYPERTENSION
     Route: 048
     Dates: start: 20090101
  2. ARAVA [Concomitant]
     Indication: RHEUMATOID ARTHRITIS
     Route: 048
     Dates: start: 20040101
  3. HUMIRA [Suspect]
     Indication: RHEUMATOID ARTHRITIS
     Route: 058
     Dates: start: 20110901
  4. UNKNOWN DRUG [Concomitant]
     Indication: OSTEOPOROSIS

REACTIONS (8)
  - BLOOD URINE PRESENT [None]
  - PYREXIA [None]
  - MALAISE [None]
  - URINARY TRACT INFECTION [None]
  - ASTHENIA [None]
  - RENAL COLIC [None]
  - DYSPNOEA [None]
  - VOMITING [None]
